FAERS Safety Report 4523216-2 (Version None)
Quarter: 2004Q4

REPORT INFORMATION
  Report Type: 
  Country: None (occurrence: None)
  Receive Date: 20041208
  Receipt Date: 20041130
  Transmission Date: 20050328
  Serious: Yes (Death)
  Sender: FDA-Public Use
  Company Number: 2004AP05785

PATIENT
  Age: 58 Year
  Sex: Male

DRUGS (9)
  1. IRESSA [Suspect]
     Indication: NON-SMALL CELL LUNG CANCER
     Dosage: 250 MG DAILY PO
     Route: 048
     Dates: start: 20041026, end: 20041107
  2. MS CONTIN [Concomitant]
  3. VOLTAREN [Concomitant]
  4. GASTROM [Concomitant]
  5. NAUZELIN [Concomitant]
  6. MAGNESIUM OXIDE [Concomitant]
  7. OMEPRAL [Concomitant]
  8. DUROTEP JANSSEN [Concomitant]
  9. LOPEMIN [Concomitant]

REACTIONS (9)
  - DIARRHOEA [None]
  - HEPATIC FUNCTION ABNORMAL [None]
  - INFECTION [None]
  - INTERSTITIAL LUNG DISEASE [None]
  - PLEURAL EFFUSION [None]
  - RENAL FAILURE ACUTE [None]
  - RENAL IMPAIRMENT [None]
  - SEPSIS [None]
  - WHITE BLOOD CELL COUNT INCREASED [None]
